FAERS Safety Report 20164930 (Version 1)
Quarter: 2021Q4

REPORT INFORMATION
  Report Type: Spontaneous
  Country: BO (occurrence: BO)
  Receive Date: 20211209
  Receipt Date: 20211209
  Transmission Date: 20220303
  Serious: Yes (Other)
  Sender: FDA-Public Use
  Company Number: BO-NOVARTISPH-NVSC2021BO110890

PATIENT
  Sex: Female

DRUGS (1)
  1. TASIGNA [Suspect]
     Active Substance: NILOTINIB
     Indication: Chronic myeloid leukaemia
     Dosage: 400 MG, BID
     Route: 065

REACTIONS (4)
  - Hyperleukocytosis [Unknown]
  - Cytogenetic analysis abnormal [Unknown]
  - Drug resistance [Unknown]
  - Drug ineffective [Unknown]
